FAERS Safety Report 21816585 (Version 1)
Quarter: 2023Q1

REPORT INFORMATION
  Report Type: Spontaneous
  Country: US (occurrence: None)
  Receive Date: 20230103
  Receipt Date: 20230103
  Transmission Date: 20230417
  Serious: Yes (Disabling)
  Sender: FDA-Public Use
  Company Number: None

PATIENT
  Age: 64 Year
  Sex: Female
  Weight: 56.25 kg

DRUGS (11)
  1. KEYTRUDA [Suspect]
     Active Substance: PEMBROLIZUMAB
     Indication: Lung neoplasm malignant
     Dosage: OTHER QUANTITY : 1 INJECTION(S);?OTHER FREQUENCY : EVERY 4 WEEKS;?OTHER ROUTE : INFUSION;?
     Route: 050
  2. LEVOTHYROXINE [Concomitant]
     Active Substance: LEVOTHYROXINE
  3. CALCIUM CARBONATE\ERGOCALCIFEROL\RETINOL [Concomitant]
     Active Substance: CALCIUM CARBONATE\ERGOCALCIFEROL\RETINOL
  4. LIOTHYRONINE [Concomitant]
     Active Substance: LIOTHYRONINE
  5. ENALAPRIL [Concomitant]
     Active Substance: ENALAPRIL
  6. XANAX [Concomitant]
     Active Substance: ALPRAZOLAM
  7. HYDROXYZINE [Concomitant]
     Active Substance: HYDROXYZINE HYDROCHLORIDE
  8. AMBIEN [Concomitant]
     Active Substance: ZOLPIDEM TARTRATE
  9. FUROSEMIDE [Concomitant]
     Active Substance: FUROSEMIDE
  10. PREDNISONE [Concomitant]
     Active Substance: PREDNISONE
  11. ADVIL [Concomitant]
     Active Substance: IBUPROFEN

REACTIONS (15)
  - Musculoskeletal stiffness [None]
  - Movement disorder [None]
  - Pain [None]
  - Arthropathy [None]
  - Gait inability [None]
  - Muscular weakness [None]
  - Gait disturbance [None]
  - Peroneal nerve palsy [None]
  - Motor dysfunction [None]
  - Impaired driving ability [None]
  - Joint swelling [None]
  - Joint swelling [None]
  - Hand deformity [None]
  - Paralysis [None]
  - Loss of personal independence in daily activities [None]

NARRATIVE: CASE EVENT DATE: 20220924
